FAERS Safety Report 8315380-4 (Version None)
Quarter: 2012Q2

REPORT INFORMATION
  Report Type: 
  Country: None (occurrence: None)
  Receive Date: 20120426
  Receipt Date: 20120420
  Transmission Date: 20120825
  Serious: Yes (Other)
  Sender: FDA-Public Use
  Company Number: JP-BRACCO-005856

PATIENT
  Age: 68 Year
  Sex: Female

DRUGS (2)
  1. PROHANCE [Suspect]
     Indication: DIAGNOSTIC PROCEDURE
     Route: 042
     Dates: start: 20120420, end: 20120420
  2. PROHANCE [Suspect]
     Indication: METASTASIS
     Route: 042
     Dates: start: 20120420, end: 20120420

REACTIONS (2)
  - METASTASIS [None]
  - SHOCK [None]
